FAERS Safety Report 7356004-2 (Version None)
Quarter: 2011Q1

REPORT INFORMATION
  Report Type: 
  Country: None (occurrence: None)
  Receive Date: 20110310
  Receipt Date: 20110310
  Transmission Date: 20110831
  Serious: Yes (Other)
  Sender: FDA-Public Use
  Company Number: None

PATIENT
  Age: 40 Year
  Sex: Male
  Weight: 84.369 kg

DRUGS (3)
  1. VIOXX [Suspect]
     Indication: PAIN
     Dates: start: 20000105, end: 20000115
  2. TEQUIN [Suspect]
     Indication: INFECTION
     Dates: start: 20000201, end: 20000211
  3. ANTIBIOTICS [Concomitant]

REACTIONS (3)
  - HERNIA [None]
  - HAEMORRHAGE [None]
  - PARALYSIS [None]
